FAERS Safety Report 5420566-2 (Version None)
Quarter: 2007Q3

REPORT INFORMATION
  Report Type: 
  Country: None (occurrence: None)
  Receive Date: 20070821
  Receipt Date: 20070810
  Transmission Date: 20080115
  Serious: Yes (Hospitalization, Other)
  Sender: FDA-Public Use
  Company Number: US-JNJFOC-20070802725

PATIENT
  Sex: Female
  Weight: 68.04 kg

DRUGS (2)
  1. DURAGESIC-100 [Suspect]
     Indication: PAIN
     Route: 062
  2. SEROQUEL [Concomitant]
     Indication: BIPOLAR DISORDER
     Route: 048

REACTIONS (15)
  - BREAST MASS [None]
  - CANDIDIASIS [None]
  - DYSPEPSIA [None]
  - INCORRECT DRUG ADMINISTRATION DURATION [None]
  - MIGRAINE [None]
  - MOOD SWINGS [None]
  - NAUSEA [None]
  - NEURALGIA [None]
  - PHARYNGEAL ULCERATION [None]
  - PYREXIA [None]
  - STOMATITIS [None]
  - UNRESPONSIVE TO STIMULI [None]
  - VOMITING [None]
  - WHITE BLOOD CELL COUNT INCREASED [None]
  - WRONG TECHNIQUE IN DRUG USAGE PROCESS [None]
